FAERS Safety Report 14613585 (Version 3)
Quarter: 2018Q2

REPORT INFORMATION
  Report Type: Spontaneous
  Country: MA (occurrence: MA)
  Receive Date: 20180308
  Receipt Date: 20180408
  Transmission Date: 20180711
  Serious: Yes (Death, Life-Threatening)
  Sender: FDA-Public Use
  Company Number: MA-NOVOPROD-588826

PATIENT
  Age: 14 Year
  Sex: Male
  Weight: 51 kg

DRUGS (13)
  1. EXACYL [Suspect]
     Active Substance: TRANEXAMIC ACID
     Indication: PRODUCT USED FOR UNKNOWN INDICATION
     Dosage: DURING SURGERY
     Route: 065
  2. URBANYL [Concomitant]
     Active Substance: CLOBAZAM
     Dosage: BEFORE SURGERY UPON ADMISSION,POST-SURGERY)
     Route: 065
     Dates: start: 20180123
  3. KEFZOL [Concomitant]
     Active Substance: CEFAZOLIN SODIUM
     Dosage: 2 MG DURING SURGERY
     Route: 065
  4. NOVOSEVEN RT [Suspect]
     Active Substance: COAGULATION FACTOR VIIA RECOMBINANT HUMAN
     Indication: SURGERY
     Dosage: 15?G/KG (POST SURGERY EVERY 6HRS)
     Route: 042
  5. AUGMENTIN [Concomitant]
     Active Substance: AMOXICILLIN\CLAVULANATE POTASSIUM
     Dosage: 1 G EACH 8 HRS POST- SURGERY -ANTIBIOTIC POST-SURGERY
     Route: 065
  6. DEPAKINE                           /00228501/ [Concomitant]
     Active Substance: VALPROIC ACID
     Dosage: 500 MG (BEFORE SURGERY,HOSPITALIZATION, POST-SURGERY)
     Route: 065
     Dates: start: 20180123
  7. NOVOSEVEN RT [Suspect]
     Active Substance: COAGULATION FACTOR VIIA RECOMBINANT HUMAN
     Indication: FACTOR VII DEFICIENCY
     Dosage: 30?G/KG SINGLE BOLUS (51KG) 30 MIN PRE-SURGERY
     Route: 042
     Dates: start: 20180201
  8. DIPRIVAN [Concomitant]
     Active Substance: PROPOFOL
     Dosage: NARCOTIC DURING SURGERY
     Route: 065
  9. AUGMENTIN [Concomitant]
     Active Substance: AMOXICILLIN\CLAVULANATE POTASSIUM
     Dosage: UNK
  10. XENID                              /00372302/ [Concomitant]
     Dosage: BEFORE SURGERY, DAILY UPON ADMISSION,TSPITALIZATION
     Route: 065
     Dates: start: 20180123
  11. FENTANYL. [Concomitant]
     Active Substance: FENTANYL
     Indication: ANALGESIC THERAPY
     Dosage: DURING SURGERY
     Route: 065
  12. ISOFLURANE. [Concomitant]
     Active Substance: ISOFLURANE
     Dosage: HALOGENE DURING SURGERY
     Route: 065
  13. PARACETAMOL [Concomitant]
     Active Substance: ACETAMINOPHEN
     Dosage: 750 MG, TID (BEFORE, DURING AND POST SURGERY)
     Route: 065
     Dates: start: 20180123

REACTIONS (2)
  - Death [Fatal]
  - Cerebral artery embolism [Not Recovered/Not Resolved]

NARRATIVE: CASE EVENT DATE: 20180228
